FAERS Safety Report 9690062 (Version 1)
Quarter: 2013Q4

REPORT INFORMATION
  Report Type: Spontaneous
  Country: US (occurrence: US)
  Receive Date: 20131115
  Receipt Date: 20131115
  Transmission Date: 20140711
  Serious: Yes (Hospitalization)
  Sender: FDA-Public Use
  Company Number: US-BAYER-2013-138832

PATIENT
  Age: 22 Year
  Sex: Female

DRUGS (2)
  1. YASMIN [Suspect]
     Indication: DYSMENORRHOEA
  2. IBUPROFEN [Concomitant]

REACTIONS (2)
  - Pulmonary embolism [None]
  - Pelvic venous thrombosis [None]
